FAERS Safety Report 20086886 (Version 4)
Quarter: 2022Q1

REPORT INFORMATION
  Report Type: Spontaneous
  Country: US (occurrence: US)
  Receive Date: 20211118
  Receipt Date: 20220202
  Transmission Date: 20220423
  Serious: Yes (Other)
  Sender: FDA-Public Use
  Company Number: US-GLAXOSMITHKLINE-US2021232873

PATIENT
  Age: 84 Year
  Sex: Female

DRUGS (12)
  1. BREO ELLIPTA [Suspect]
     Active Substance: FLUTICASONE FUROATE\VILANTEROL TRIFENATATE
     Indication: Cough
     Dosage: UNK, 200MCG/25MCG
     Route: 055
     Dates: start: 2019
  2. BREO ELLIPTA [Suspect]
     Active Substance: FLUTICASONE FUROATE\VILANTEROL TRIFENATATE
     Indication: Wheezing
  3. BREO ELLIPTA [Suspect]
     Active Substance: FLUTICASONE FUROATE\VILANTEROL TRIFENATATE
     Indication: Product used for unknown indication
     Dosage: UNK, QD (200/25MCG)
     Route: 055
     Dates: start: 2019
  4. VENTOLIN [Suspect]
     Active Substance: ALBUTEROL SULFATE
     Indication: Cough
     Dosage: UNK, QID
     Route: 055
  5. VENTOLIN [Suspect]
     Active Substance: ALBUTEROL SULFATE
     Indication: Wheezing
     Dosage: UNK, AS NEEDED
     Route: 055
  6. LUCENTIS [Suspect]
     Active Substance: RANIBIZUMAB
     Indication: Neovascular age-related macular degeneration
     Dosage: UNK, EVERY 4 TO 6 WEEKS
  7. OLMESARTAN MEDOXOMIL + HYDROCHLOROTHIAZIDE TABLETS [Concomitant]
     Indication: Hypertension
     Dosage: UNK, QD, 40/12.5MG
  8. MONTELUKAST [Concomitant]
     Active Substance: MONTELUKAST SODIUM
     Indication: Asthma
     Dosage: 10 MG
  9. SIMVASTATIN [Concomitant]
     Active Substance: SIMVASTATIN
     Indication: Blood cholesterol increased
     Dosage: 20 MG, QD
  10. LATANOPROST [Concomitant]
     Active Substance: LATANOPROST
     Indication: Glaucoma
     Dosage: UNK, QD 0.005 1 DROP IN EACH EYE AT BEDTIME
  11. TIMOLOL MALEATE [Concomitant]
     Active Substance: TIMOLOL MALEATE
     Indication: Glaucoma
     Dosage: UNK, BID, 0.5 1 DROP 2 TIMES PER DAY IN BOTH EYES
  12. BRIMONIDINE [Concomitant]
     Active Substance: BRIMONIDINE TARTRATE
     Indication: Glaucoma
     Dosage: UNK, BID, 0.2 1 DROP IN LEFT EYE

REACTIONS (7)
  - Blindness [Not Recovered/Not Resolved]
  - Eye operation [Not Recovered/Not Resolved]
  - Ocular discomfort [Unknown]
  - Eye inflammation [Recovered/Resolved]
  - Corneal scar [Recovered/Resolved]
  - Expired device used [Unknown]
  - Product use in unapproved indication [Unknown]

NARRATIVE: CASE EVENT DATE: 20201129
